FAERS Safety Report 6709783-9 (Version None)
Quarter: 2010Q2

REPORT INFORMATION
  Report Type: 
  Country: None (occurrence: None)
  Receive Date: 20100429
  Receipt Date: 20100413
  Transmission Date: 20101027
  Serious: Yes (Hospitalization)
  Sender: FDA-Public Use
  Company Number: 2010001555

PATIENT
  Age: 44 Year
  Sex: Male

DRUGS (8)
  1. ERLOTINIB HYDROCHLORIDE [Suspect]
     Indication: HEPATIC NEOPLASM MALIGNANT
     Dosage: (150 MG, QD), ORAL
     Route: 048
     Dates: start: 20100315, end: 20100323
  2. SORAFENIB [Suspect]
     Indication: HEPATIC NEOPLASM MALIGNANT
     Dosage: (800 MG, QD), ORAL
     Route: 048
     Dates: start: 20100315, end: 20100323
  3. LACTULOSE [Concomitant]
  4. PROPRANOLOL [Concomitant]
  5. RANITIDINE [Concomitant]
  6. SPIRONOLACTONE [Concomitant]
  7. TORSEMIDE [Concomitant]
  8. FERROUS SULFATE TAB [Concomitant]

REACTIONS (9)
  - BLOOD ELECTROLYTES DECREASED [None]
  - DEHYDRATION [None]
  - DIARRHOEA [None]
  - HYPERKALAEMIA [None]
  - MUCOSAL INFLAMMATION [None]
  - PAIN [None]
  - RENAL FAILURE [None]
  - STOMATITIS [None]
  - ULCER [None]
